FAERS Safety Report 5399905-7 (Version None)
Quarter: 2007Q3

REPORT INFORMATION
  Report Type: 
  Country: None (occurrence: None)
  Receive Date: 20070730
  Receipt Date: 20070719
  Transmission Date: 20080115
  Serious: Yes (Other)
  Sender: FDA-Public Use
  Company Number: PHHO2006BR20403

PATIENT
  Age: 51 Year
  Sex: Female
  Weight: 94 kg

DRUGS (9)
  1. FORASEQ [Suspect]
     Indication: ASTHMA
     Dosage: 12/400 MCG
  2. DIOVAN [Suspect]
     Indication: HYPERTENSION
  3. SELOPRES [Concomitant]
     Indication: HYPERTENSION
  4. TRAMADOL HCL [Concomitant]
     Indication: PAIN
  5. GABAPENTIN [Concomitant]
     Indication: PAIN
  6. LIORESAL [Concomitant]
     Indication: PAIN
  7. OMEPRAZOLE [Concomitant]
  8. DALMADORM [Concomitant]
  9. ZELNORM [Suspect]

REACTIONS (11)
  - ABDOMINAL PAIN UPPER [None]
  - ASTHMATIC CRISIS [None]
  - CERVICAL VERTEBRAL FRACTURE [None]
  - DYSPEPSIA [None]
  - FALL [None]
  - GASTRIC HAEMORRHAGE [None]
  - GASTRITIS [None]
  - HIATUS HERNIA [None]
  - HYPERTENSION [None]
  - PAIN [None]
  - REFLUX GASTRITIS [None]
